FAERS Safety Report 4519999-8 (Version None)
Quarter: 2004Q4

REPORT INFORMATION
  Report Type: 
  Country: None (occurrence: None)
  Receive Date: 20041207
  Receipt Date: 20041125
  Transmission Date: 20050328
  Serious: Yes (Death, Other)
  Sender: FDA-Public Use
  Company Number: JP-MERCK-0411USA04208

PATIENT
  Age: 12 Year
  Sex: Male

DRUGS (5)
  1. COSMEGEN [Suspect]
     Route: 042
  2. VINCRISTINE SULFATE [Suspect]
     Route: 042
  3. CYCLOPHOSPHAMIDE [Suspect]
     Route: 042
  4. PIRARUBICIN [Suspect]
     Route: 042
  5. IFOSFAMIDE [Suspect]
     Route: 042

REACTIONS (2)
  - PANCYTOPENIA [None]
  - SEPSIS [None]
